FAERS Safety Report 21541096 (Version 7)
Quarter: 2023Q4

REPORT INFORMATION
  Report Type: Spontaneous
  Country: DE (occurrence: DE)
  Receive Date: 20221102
  Receipt Date: 20231105
  Transmission Date: 20240110
  Serious: Yes (Life-Threatening, Other)
  Sender: FDA-Public Use
  Company Number: DE-NOVARTISPH-NVSC2022DE243801

PATIENT
  Age: 76 Year
  Sex: Female

DRUGS (47)
  1. DEXAMETHASONE [Suspect]
     Active Substance: DEXAMETHASONE
     Indication: Plasma cell myeloma refractory
     Dosage: 20 MG, OTHER (D1,D2)
     Route: 065
     Dates: start: 20211206, end: 20211207
  2. DEXAMETHASONE [Suspect]
     Active Substance: DEXAMETHASONE
     Dosage: 10 MG, OTHER (D8,D9,D15, D16, D22, D23)
     Route: 065
     Dates: start: 20220110, end: 20220125
  3. DEXAMETHASONE [Suspect]
     Active Substance: DEXAMETHASONE
     Dosage: 10 MG, OTHER (D1,D2,D8,D9, D15, D16, D22, D23)
     Route: 065
     Dates: start: 20220131, end: 20220222
  4. DEXAMETHASONE [Suspect]
     Active Substance: DEXAMETHASONE
     Dosage: 10 MG, OTHER (D1,D2,D8,D9)
     Route: 065
     Dates: start: 20220228, end: 20220313
  5. DEXAMETHASONE [Suspect]
     Active Substance: DEXAMETHASONE
     Dosage: 10 MG, OTHER (D22,D23)
     Route: 065
     Dates: start: 20220321, end: 20220322
  6. DEXAMETHASONE [Suspect]
     Active Substance: DEXAMETHASONE
     Dosage: 10 MG, OTHER (D1,D2)
     Route: 065
     Dates: start: 20220328, end: 20220329
  7. DEXAMETHASONE [Suspect]
     Active Substance: DEXAMETHASONE
     Dosage: 10 MG (D22, D23)
     Route: 065
     Dates: start: 20220531, end: 20220601
  8. DEXAMETHASONE [Suspect]
     Active Substance: DEXAMETHASONE
     Dosage: 10 MG, OTHER (D1)
     Route: 065
     Dates: start: 20220621, end: 20220622
  9. DEXAMETHASONE [Suspect]
     Active Substance: DEXAMETHASONE
     Dosage: 10 MG, OTHER (D1)
     Route: 065
     Dates: start: 20221005, end: 20221005
  10. DEXAMETHASONE [Suspect]
     Active Substance: DEXAMETHASONE
     Dosage: 10 MG, OTHER (D8, D9, D15, D16)
     Route: 065
     Dates: start: 20221012, end: 20221020
  11. ISATUXIMAB [Suspect]
     Active Substance: ISATUXIMAB
     Indication: Plasma cell myeloma refractory
     Dosage: 800 MG, QW
     Route: 065
     Dates: start: 20211206, end: 20211206
  12. ISATUXIMAB [Suspect]
     Active Substance: ISATUXIMAB
     Dosage: 800 MG, QW (D8, 15, 22))
     Route: 065
     Dates: start: 20220110, end: 20220124
  13. ISATUXIMAB [Suspect]
     Active Substance: ISATUXIMAB
     Dosage: 800 MG, OTHER (D1, D15)
     Route: 065
     Dates: start: 20220131, end: 20220214
  14. ISATUXIMAB [Suspect]
     Active Substance: ISATUXIMAB
     Dosage: 800 MG, OTHER (D1)
     Route: 065
     Dates: start: 20220228, end: 20220313
  15. ISATUXIMAB [Suspect]
     Active Substance: ISATUXIMAB
     Dosage: 800 MG, OTHER (D1)
     Route: 065
     Dates: start: 20220328, end: 20220328
  16. ISATUXIMAB [Suspect]
     Active Substance: ISATUXIMAB
     Dosage: 800 MG, OTHER (D1)
     Route: 065
     Dates: start: 20220621, end: 20220621
  17. ISATUXIMAB [Suspect]
     Active Substance: ISATUXIMAB
     Dosage: 400 MG, OTHER (D1)
     Route: 065
     Dates: start: 20221005, end: 20221005
  18. ISATUXIMAB [Suspect]
     Active Substance: ISATUXIMAB
     Dosage: 1600 MG, QW (800 MG OTHER D1, D15)
     Route: 065
     Dates: start: 20220131, end: 20220214
  19. ISATUXIMAB [Suspect]
     Active Substance: ISATUXIMAB
     Dosage: 1600 MG, QW (800 MG, OTHER D1)
     Route: 065
     Dates: start: 20220328, end: 20220328
  20. ISATUXIMAB [Suspect]
     Active Substance: ISATUXIMAB
     Dosage: 800 MG, QW (400 MG, OTHER D1)
     Route: 065
     Dates: start: 20221005
  21. ISATUXIMAB [Suspect]
     Active Substance: ISATUXIMAB
     Dosage: 1600 MG, QW (800 MG, OTHER D1)
     Route: 065
     Dates: start: 20220621, end: 20220621
  22. CARFILZOMIB [Suspect]
     Active Substance: CARFILZOMIB
     Indication: Plasma cell myeloma refractory
     Dosage: 37 MG, OTHER (D1, D2)
     Route: 065
     Dates: start: 20211206, end: 20211207
  23. CARFILZOMIB [Suspect]
     Active Substance: CARFILZOMIB
     Dosage: 103 MG, OTHER (D8,D9, D15, D16)
     Route: 065
     Dates: start: 20220110, end: 20220111
  24. CARFILZOMIB [Suspect]
     Active Substance: CARFILZOMIB
     Dosage: 103 MG, OTHER (D1,D2,D8,D9, D15, D16)
     Route: 065
     Dates: start: 20220131, end: 20220215
  25. CARFILZOMIB [Suspect]
     Active Substance: CARFILZOMIB
     Dosage: 103 MG, OTHER (D1,D2,D8,D9)
     Route: 065
     Dates: start: 20220228, end: 20220313
  26. CARFILZOMIB [Suspect]
     Active Substance: CARFILZOMIB
     Dosage: 103 MG, OTHER (D1,D2)
     Route: 065
     Dates: start: 20220328, end: 20220329
  27. CARFILZOMIB [Suspect]
     Active Substance: CARFILZOMIB
     Dosage: 103 MG (D8, D9, D15)
     Route: 065
     Dates: start: 20220425, end: 20220524
  28. CARFILZOMIB [Suspect]
     Active Substance: CARFILZOMIB
     Dosage: 103 MG (D22)
     Route: 065
     Dates: start: 20220531, end: 20220531
  29. CARFILZOMIB [Suspect]
     Active Substance: CARFILZOMIB
     Dosage: 81 MG, OTHER (D1)
     Route: 065
     Dates: start: 20220621, end: 20220621
  30. CARFILZOMIB [Suspect]
     Active Substance: CARFILZOMIB
     Dosage: 81 MG, OTHER (D1, D2)
     Route: 065
     Dates: start: 20220621, end: 20220622
  31. CARFILZOMIB [Suspect]
     Active Substance: CARFILZOMIB
     Dosage: 77 MG, OTHER (D1)
     Route: 065
     Dates: start: 20221005, end: 20221005
  32. CARFILZOMIB [Suspect]
     Active Substance: CARFILZOMIB
     Dosage: 77 MG, OTHER (D8, D9, D15, D160
     Route: 065
     Dates: start: 20221012, end: 20221020
  33. LISINOPRIL [Concomitant]
     Active Substance: LISINOPRIL
     Indication: Hypertension
     Dosage: UNK
     Route: 065
     Dates: start: 2017
  34. CHOLECALCIFEROL [Concomitant]
     Active Substance: CHOLECALCIFEROL
     Indication: Osteopenia
     Dosage: UNK
     Route: 065
     Dates: start: 20220926
  35. LEVOTHYROXINE SODIUM [Concomitant]
     Active Substance: LEVOTHYROXINE SODIUM
     Indication: Hypothyroidism
     Dosage: UNK
     Route: 065
     Dates: start: 2017
  36. CALCIUM [Concomitant]
     Active Substance: CALCIUM
     Indication: Cholecystectomy
     Dosage: UNK
     Route: 065
     Dates: start: 20221011
  37. PREDNISOLONE [Concomitant]
     Active Substance: PREDNISOLONE
     Indication: Rheumatic disorder
     Dosage: UNK
     Route: 065
     Dates: start: 2018
  38. ACETAMINOPHEN [Concomitant]
     Active Substance: ACETAMINOPHEN
     Indication: Prophylaxis
     Dosage: UNK UNK, QCY
     Route: 065
     Dates: start: 20211206, end: 20221005
  39. DEFERASIROX [Concomitant]
     Active Substance: DEFERASIROX
     Indication: Product used for unknown indication
     Dosage: UNK
     Route: 065
     Dates: start: 20220914
  40. FOLIC ACID [Concomitant]
     Active Substance: FOLIC ACID
     Indication: Rheumatic disorder
     Dosage: UNK
     Route: 065
     Dates: start: 1992
  41. CLEMASTINE [Concomitant]
     Active Substance: CLEMASTINE
     Indication: Prophylaxis
     Dosage: UNK, QCY
     Route: 065
     Dates: start: 20211206, end: 20221005
  42. METHOTREXATE [Concomitant]
     Active Substance: METHOTREXATE
     Indication: Rheumatic disorder
     Dosage: UNK
     Route: 065
     Dates: start: 1992
  43. VITAMIN B12 [Concomitant]
     Active Substance: CYANOCOBALAMIN
     Indication: Vitamin B12 deficiency
     Dosage: UNK
     Route: 065
     Dates: start: 20181130
  44. MONTELUKAST [Concomitant]
     Active Substance: MONTELUKAST SODIUM
     Indication: Rhinitis allergic
     Dosage: UNK
     Route: 065
     Dates: start: 20211130
  45. ONDANSETRON [Concomitant]
     Active Substance: ONDANSETRON
     Indication: Product used for unknown indication
     Dosage: UNK
     Route: 065
     Dates: start: 20220210, end: 20220607
  46. METAMIZOLE [Concomitant]
     Active Substance: METAMIZOLE
     Indication: Intervertebral disc disorder
     Dosage: UNK
     Route: 065
     Dates: start: 2018
  47. EPOETIN ALFA [Concomitant]
     Active Substance: ERYTHROPOIETIN
     Indication: Anaemia
     Dosage: UNK
     Route: 065
     Dates: start: 20200717

REACTIONS (5)
  - Infusion related reaction [Recovered/Resolved]
  - Hypersensitivity [Recovered/Resolved]
  - Pancytopenia [Recovered/Resolved]
  - Serum ferritin increased [Recovering/Resolving]
  - Myelodysplastic syndrome [Not Recovered/Not Resolved]

NARRATIVE: CASE EVENT DATE: 20221005
